FAERS Safety Report 7985231-6 (Version None)
Quarter: 2011Q4

REPORT INFORMATION
  Report Type: 
  Country: None (occurrence: None)
  Receive Date: 20111213
  Receipt Date: 20111206
  Transmission Date: 20120403
  Serious: Yes (Other)
  Sender: FDA-Public Use
  Company Number: WAES 1112USA00631

PATIENT

DRUGS (1)
  1. DECADRON [Suspect]
     Dosage: PO
     Route: 048

REACTIONS (2)
  - PLATELET COUNT DECREASED [None]
  - SPLENECTOMY [None]
